FAERS Safety Report 8581652-1 (Version None)
Quarter: 2012Q3

REPORT INFORMATION
  Report Type: 
  Country: None (occurrence: None)
  Receive Date: 20120809
  Receipt Date: 20120806
  Transmission Date: 20120928
  Serious: Yes (Death, Hospitalization)
  Sender: FDA-Public Use
  Company Number: ES-TEVA-352407USA

PATIENT
  Sex: Female

DRUGS (8)
  1. TOBRAMYCIN [Concomitant]
     Dates: start: 20120305
  2. ERYTHROMYCIN [Concomitant]
     Dates: start: 20120305
  3. ACENOCOUMAROL [Concomitant]
     Dates: start: 20120305
  4. TREANDA [Suspect]
     Indication: MULTIPLE MYELOMA
     Route: 042
     Dates: start: 20120314
  5. BORTEZOMIB [Suspect]
     Indication: MULTIPLE MYELOMA
  6. NEOMYCIN SULFATE TAB [Concomitant]
     Dates: start: 20120326
  7. PREDNISONE TAB [Suspect]
     Indication: MULTIPLE MYELOMA
     Dates: start: 20120314
  8. LEVOFLOXACIN [Concomitant]
     Dates: start: 20120410

REACTIONS (1)
  - BACK PAIN [None]
